FAERS Safety Report 10109504 (Version 1)
Quarter: 2014Q2

REPORT INFORMATION
  Report Type: Spontaneous
  Country: US (occurrence: None)
  Receive Date: 20140421
  Receipt Date: 20140421
  Transmission Date: 20141212
  Serious: Yes (Other)
  Sender: FDA-Public Use
  Company Number: AEGR000370

PATIENT
  Age: 61 Year
  Sex: Female
  Weight: 74.8 kg

DRUGS (6)
  1. JUXTAPID (LOMITAPIDE) CAPSULE, 5MG [Suspect]
     Indication: TYPE IIA HYPERLIPIDAEMIA
     Route: 048
     Dates: start: 201401, end: 20140317
  2. MULTIVITAMIN (VITAMINS NOS) [Concomitant]
  3. METFORMIN (METFORMIN) [Concomitant]
  4. CO Q10 (UBIDECARENONE) [Concomitant]
  5. CHLORTHALIDONE (CHLORTALIDONE) [Concomitant]
  6. ACIPHEX (RABERPRAZOLE SODIUM) [Concomitant]

REACTIONS (1)
  - Diarrhoea [None]
